FAERS Safety Report 8175781-4 (Version None)
Quarter: 2012Q1

REPORT INFORMATION
  Report Type: 
  Country: None (occurrence: None)
  Receive Date: 20120228
  Receipt Date: 20120217
  Transmission Date: 20120608
  Serious: Yes (Other)
  Sender: FDA-Public Use
  Company Number: AUR-APL-2012-00757

PATIENT
  Age: 37 Year
  Sex: Female
  Weight: 61.6892 kg

DRUGS (2)
  1. AMITRIPTYLINE HCL [Concomitant]
  2. ZOLPIDEM [Suspect]
     Indication: INSOMNIA
     Dosage: (1 DOSAGE FORMS, EVERY NIGHT), ORAL
     Route: 048
     Dates: start: 20090101

REACTIONS (2)
  - PRODUCT QUALITY ISSUE [None]
  - DRUG INEFFECTIVE [None]
